FAERS Safety Report 22198627 (Version 3)
Quarter: 2023Q2

REPORT INFORMATION
  Report Type: Report from Study
  Country: IT (occurrence: None)
  Receive Date: 20230411
  Receipt Date: 20230517
  Transmission Date: 20230721
  Serious: Yes (Death)
  Sender: FDA-Public Use
  Company Number: IT-Merck Healthcare KGaA-9395506

PATIENT
  Sex: Female

DRUGS (2)
  1. TEPOTINIB [Suspect]
     Active Substance: TEPOTINIB
     Indication: Lung cancer metastatic
     Dates: start: 20210304
  2. TEPOTINIB [Suspect]
     Active Substance: TEPOTINIB
     Dates: end: 20211020

REACTIONS (2)
  - Death [Fatal]
  - Disease progression [Recovered/Resolved]

NARRATIVE: CASE EVENT DATE: 20211020
